FAERS Safety Report 14876132 (Version 1)
Quarter: 2018Q2

REPORT INFORMATION
  Report Type: Other
  Country: US (occurrence: US)
  Receive Date: 20180510
  Receipt Date: 20180510
  Transmission Date: 20180711
  Serious: Yes (Hospitalization)
  Sender: FDA-Public Use
  Company Number: US-B. BRAUN MEDICAL INC.-2047561

PATIENT
  Age: 69 Year
  Sex: Male

DRUGS (1)
  1. POTASSIUM CHLORIDE FOR INJECTION CONCENTRATE USP 0264-1940-20 [Suspect]
     Active Substance: POTASSIUM CHLORIDE

REACTIONS (2)
  - Electrocardiogram QT prolonged [None]
  - Torsade de pointes [None]
